FAERS Safety Report 4313114-1 (Version None)
Quarter: 2004Q1

REPORT INFORMATION
  Report Type: 
  Country: None (occurrence: None)
  Receive Date: 20040305
  Receipt Date: 20040305
  Transmission Date: 20041129
  Serious: Yes (Other)
  Sender: FDA-Public Use
  Company Number: None

PATIENT
  Sex: Female
  Weight: 131.9967 kg

DRUGS (1)
  1. EFFEXOR XR [Suspect]

REACTIONS (2)
  - PSYCHOTIC DISORDER [None]
  - SCREAMING [None]
